FAERS Safety Report 22049215 (Version 1)
Quarter: 2023Q1

REPORT INFORMATION
  Report Type: Spontaneous
  Country: US (occurrence: US)
  Receive Date: 20230301
  Receipt Date: 20230301
  Transmission Date: 20230418
  Serious: Yes (Life-Threatening, Hospitalization)
  Sender: FDA-Public Use
  Company Number: US-MYLANLABS-2023M1022159

PATIENT
  Age: 55 Year
  Sex: Male

DRUGS (5)
  1. EPINEPHRINE [Suspect]
     Active Substance: EPINEPHRINE
     Indication: Cardiomyopathy
     Dosage: UNK; 0.05 UG/KG/MIN
     Route: 065
  2. NOREPINEPHRINE [Suspect]
     Active Substance: NOREPINEPHRINE
     Indication: Cardiomyopathy
     Dosage: UNK; 0.5 UG/KG/MIN
     Route: 065
  3. VASOPRESSIN [Suspect]
     Active Substance: VASOPRESSIN
     Indication: Cardiomyopathy
     Dosage: UNK; 0.04 UG/KG/MIN
     Route: 065
  4. AMIODARONE [Concomitant]
     Active Substance: AMIODARONE
     Indication: Atrial fibrillation
     Dosage: UNK
     Route: 042
  5. METOPROLOL [Concomitant]
     Active Substance: METOPROLOL
     Indication: Atrial fibrillation
     Dosage: UNK
     Route: 042

REACTIONS (1)
  - Drug ineffective [Unknown]
